FAERS Safety Report 5931866-1 (Version None)
Quarter: 2008Q4

REPORT INFORMATION
  Report Type: 
  Country: None (occurrence: None)
  Receive Date: 20081027
  Receipt Date: 20081023
  Transmission Date: 20090506
  Serious: Yes (Other)
  Sender: FDA-Public Use
  Company Number: GB-ASTRAZENECA-2008GB02011

PATIENT
  Age: 54 Year
  Sex: Female

DRUGS (2)
  1. TAMOXIFEN CITRATE [Suspect]
     Indication: BREAST CANCER
     Route: 048
     Dates: start: 20071001, end: 20081022
  2. HERCEPTIN [Concomitant]
     Dosage: PATIENT HAS HAD 11 CYCLES OF TREATMENT TO DATE

REACTIONS (1)
  - HYPERTRIGLYCERIDAEMIA [None]
